FAERS Safety Report 7572537-8 (Version None)
Quarter: 2011Q2

REPORT INFORMATION
  Report Type: 
  Country: None (occurrence: None)
  Receive Date: 20110627
  Receipt Date: 20110615
  Transmission Date: 20111010
  Serious: Yes (Hospitalization)
  Sender: FDA-Public Use
  Company Number: US-BIOGENIDEC-2011BI009070

PATIENT
  Age: 55 Year
  Sex: Female
  Weight: 54 kg

DRUGS (5)
  1. PREMARIN [Concomitant]
     Dates: start: 19800101
  2. AVONEX [Suspect]
     Indication: MULTIPLE SCLEROSIS
     Route: 030
     Dates: start: 20070714
  3. MAXALT [Concomitant]
     Indication: MIGRAINE
     Route: 060
  4. ZOLOFT [Concomitant]
     Dates: start: 20060101
  5. SYNTHROID [Concomitant]
     Dates: start: 19810101

REACTIONS (7)
  - TREMOR [None]
  - PAIN IN EXTREMITY [None]
  - PARANASAL SINUS HYPERSECRETION [None]
  - SPINAL FRACTURE [None]
  - SCIATICA [None]
  - BACK PAIN [None]
  - FALL [None]
